FAERS Safety Report 24062038 (Version 1)
Quarter: 2024Q3

REPORT INFORMATION
  Report Type: Spontaneous
  Country: CN (occurrence: CN)
  Receive Date: 20240708
  Receipt Date: 20240708
  Transmission Date: 20241017
  Serious: Yes (Life-Threatening, Hospitalization)
  Sender: NOVARTIS
  Company Number: CN-002147023-NVSC2024CN139753

PATIENT
  Age: 59 Year
  Sex: Female
  Weight: 52.5 kg

DRUGS (7)
  1. DESFERAL [Suspect]
     Active Substance: DEFEROXAMINE MESYLATE
     Indication: Symptomatic treatment
     Dosage: 1.500 G, QD
     Route: 041
     Dates: start: 20240615, end: 20240625
  2. AZACITIDINE [Suspect]
     Active Substance: AZACITIDINE
     Indication: Symptomatic treatment
     Dosage: 110.000 MG, QD
     Route: 058
     Dates: start: 20240622, end: 20240625
  3. SODIUM CHLORIDE [Concomitant]
     Active Substance: SODIUM CHLORIDE
     Indication: Vehicle solution use
     Dosage: 100.000 ML, TID
     Route: 041
     Dates: start: 20240615, end: 20240630
  4. SODIUM CHLORIDE [Concomitant]
     Active Substance: SODIUM CHLORIDE
     Dosage: 100.000 ML
     Route: 041
     Dates: start: 20240615, end: 20240625
  5. SODIUM CHLORIDE [Concomitant]
     Active Substance: SODIUM CHLORIDE
     Dosage: 250.000 ML, QD
     Route: 041
     Dates: start: 20240615, end: 20240625
  6. STERILE WATER [Concomitant]
     Active Substance: WATER
     Indication: Vehicle solution use
     Dosage: 8.000 ML, QD
     Route: 058
     Dates: start: 20240622, end: 20240625
  7. MAGNESIUM ISOGLYCYRRHIZINATE [Concomitant]
     Active Substance: MAGNESIUM ISOGLYCYRRHIZINATE
     Indication: Symptomatic treatment
     Dosage: 200 MG, QD
     Route: 042

REACTIONS (1)
  - Liver injury [Recovering/Resolving]

NARRATIVE: CASE EVENT DATE: 20240625
